FAERS Safety Report 5350416-4 (Version None)
Quarter: 2007Q2

REPORT INFORMATION
  Report Type: 
  Country: None (occurrence: None)
  Receive Date: 20070605
  Receipt Date: 20070605
  Transmission Date: 20071010
  Serious: No
  Sender: FDA-Public Use
  Company Number: None

PATIENT
  Sex: Male
  Weight: 66.6788 kg

DRUGS (7)
  1. ONDANSETRON [Suspect]
     Indication: NAUSEA
     Dosage: 8 MG EVERY 8 HOURS PO
     Route: 048
     Dates: start: 20070423, end: 20070426
  2. ONDANSETRON [Suspect]
     Indication: VOMITING
     Dosage: 8 MG EVERY 8 HOURS PO
     Route: 048
     Dates: start: 20070423, end: 20070426
  3. CYTARABINE [Concomitant]
  4. DEXAMETHASONE 0.5MG TAB [Concomitant]
  5. LEUCOVORIN CALCIUM [Concomitant]
  6. ACETAMINOPHEN AND HYDROCODONE BITARTRATE [Concomitant]
  7. METHOTREXATE [Concomitant]

REACTIONS (1)
  - HICCUPS [None]
